FAERS Safety Report 14315991 (Version 3)
Quarter: 2019Q2

REPORT INFORMATION
  Report Type: Spontaneous
  Country: IT (occurrence: IT)
  Receive Date: 20171221
  Receipt Date: 20190416
  Transmission Date: 20190711
  Serious: Yes (Life-Threatening, Other)
  Sender: FDA-Public Use
  Company Number: IT-MYLANLABS-2017M1080049

PATIENT
  Age: 24 Year
  Sex: Male

DRUGS (1)
  1. DEXAMETHASONE. [Suspect]
     Active Substance: DEXAMETHASONE
     Indication: ACUTE HAEMORRHAGIC LEUKOENCEPHALITIS
     Dosage: UNK (HIGH DOSE)
     Route: 042

REACTIONS (2)
  - Drug intolerance [Unknown]
  - Drug ineffective for unapproved indication [Unknown]
